FAERS Safety Report 12746902 (Version 1)
Quarter: 2016Q3

REPORT INFORMATION
  Report Type: Spontaneous
  Country: US (occurrence: US)
  Receive Date: 20160915
  Receipt Date: 20160915
  Transmission Date: 20161109
  Serious: No
  Sender: FDA-Public Use
  Company Number: US-ASTELLAS-2015US033771

PATIENT
  Sex: Male

DRUGS (1)
  1. XTANDI [Suspect]
     Active Substance: ENZALUTAMIDE
     Indication: PROSTATE CANCER
     Route: 048

REACTIONS (11)
  - Dizziness [Unknown]
  - Pain [Recovering/Resolving]
  - Decreased appetite [Recovering/Resolving]
  - Sleep disorder [Unknown]
  - Asthenia [Unknown]
  - Dyspnoea [Not Recovered/Not Resolved]
  - Weight decreased [Recovering/Resolving]
  - Insomnia [Recovering/Resolving]
  - Fatigue [Recovering/Resolving]
  - Vomiting [Recovered/Resolved]
  - Hyperhidrosis [Unknown]
